FAERS Safety Report 24155308 (Version 4)
Quarter: 2024Q3

REPORT INFORMATION
  Report Type: Report from Study
  Country: US (occurrence: US)
  Receive Date: 20240731
  Receipt Date: 20240812
  Transmission Date: 20241016
  Serious: Yes (Other)
  Sender: ABBVIE
  Company Number: US-ABBVIE-5825465

PATIENT
  Sex: Female
  Weight: 70 kg

DRUGS (2)
  1. HUMIRA [Suspect]
     Active Substance: ADALIMUMAB
     Indication: Crohn^s disease
     Dosage: CITRATE FREE FORM STRENGTH: 40 MG
     Route: 058
  2. HUMIRA [Suspect]
     Active Substance: ADALIMUMAB
     Dosage: CITRATE FREE FORM STRENGTH: 40 MG
     Route: 058
     Dates: start: 20240530

REACTIONS (5)
  - Appendicitis [Recovering/Resolving]
  - Abdominal pain [Unknown]
  - Constipation [Not Recovered/Not Resolved]
  - Dyschezia [Unknown]
  - Faeces hard [Recovering/Resolving]

NARRATIVE: CASE EVENT DATE: 20240101
